FAERS Safety Report 23755716 (Version 2)
Quarter: 2025Q3

REPORT INFORMATION
  Report Type: Spontaneous
  Country: GB (occurrence: GB)
  Receive Date: 20240418
  Receipt Date: 20250714
  Transmission Date: 20251020
  Serious: Yes (Hospitalization, Other)
  Sender: ACCORD
  Company Number: GB-Accord-419313

PATIENT
  Age: 46 Year
  Sex: Male

DRUGS (2)
  1. AMLODIPINE [Suspect]
     Active Substance: AMLODIPINE BESYLATE
     Route: 048
  2. ALCOHOL [Suspect]
     Active Substance: ALCOHOL

REACTIONS (3)
  - Myocarditis [Recovering/Resolving]
  - Intentional overdose [Unknown]
  - Pulmonary oedema [Unknown]
